FAERS Safety Report 6428246-1 (Version None)
Quarter: 2009Q4

REPORT INFORMATION
  Report Type: 
  Country: None (occurrence: None)
  Receive Date: 20091102
  Receipt Date: 20091019
  Transmission Date: 20100525
  Serious: Yes (Other)
  Sender: FDA-Public Use
  Company Number: BR-1170875

PATIENT
  Age: 30 Year
  Sex: Female

DRUGS (5)
  1. NEVANAC [Suspect]
     Indication: POSTOPERATIVE CARE
     Dosage: 1 GTT BID OD OPHTHALMIC
     Route: 047
     Dates: start: 20090511, end: 20090518
  2. FLORATE (FLUOROMETHOLONE ACETATE) [Concomitant]
  3. ZYMAR [Concomitant]
  4. SYSTANE (RHINARIS) [Concomitant]
  5. TENOXICAM (TENOXICAM) [Concomitant]

REACTIONS (2)
  - COMPLICATIONS OF TRANSPLANT SURGERY [None]
  - SCLERAL DISORDER [None]
